FAERS Safety Report 4579080-9 (Version None)
Quarter: 2005Q1

REPORT INFORMATION
  Report Type: 
  Country: None (occurrence: None)
  Receive Date: 20050127
  Receipt Date: 20040907
  Transmission Date: 20050727
  Serious: No
  Sender: FDA-Public Use
  Company Number: USA040977435

PATIENT
  Age: 4 Year
  Sex: Female
  Weight: 16 kg

DRUGS (1)
  1. STRATTERA [Suspect]
     Dosage: 18 MG/L DAY
     Dates: start: 20040901, end: 20040904

REACTIONS (1)
  - HYPOAESTHESIA ORAL [None]
